FAERS Safety Report 8583223-X (Version None)
Quarter: 2012Q3

REPORT INFORMATION
  Report Type: 
  Country: None (occurrence: None)
  Receive Date: 20120809
  Receipt Date: 20120802
  Transmission Date: 20120928
  Serious: Yes (Hospitalization, Other)
  Sender: FDA-Public Use
  Company Number: US-ACTELION-A-US2007-18388

PATIENT
  Age: 72 Year
  Sex: Female

DRUGS (1)
  1. TRACLEER [Suspect]
     Indication: PULMONARY ARTERIAL HYPERTENSION
     Route: 048
     Dates: start: 20050124

REACTIONS (13)
  - CARDIOVERSION [None]
  - SKIN CANCER [None]
  - CARDIAC ABLATION [None]
  - FATIGUE [None]
  - BREAST CANCER [None]
  - COLONOSCOPY [None]
  - HEART RATE INCREASED [None]
  - BASAL CELL CARCINOMA [None]
  - NEOPLASM MALIGNANT [None]
  - SKIN LESION EXCISION [None]
  - RADIOTHERAPY [None]
  - GASTROINTESTINAL HAEMORRHAGE [None]
  - BRONCHITIS VIRAL [None]
